FAERS Safety Report 4337791-4 (Version None)
Quarter: 2004Q2

REPORT INFORMATION
  Report Type: 
  Country: None (occurrence: None)
  Receive Date: 20040408
  Receipt Date: 20040326
  Transmission Date: 20050107
  Serious: Yes (Hospitalization)
  Sender: FDA-Public Use
  Company Number: 040331-0000327

PATIENT
  Age: 22 Year
  Sex: Female

DRUGS (1)
  1. METHAMPHETAMINE HCL [Suspect]
     Indication: DRUG ABUSER
     Dosage: IV
     Route: 042

REACTIONS (9)
  - AGGRESSION [None]
  - DEPRESSION [None]
  - DRUG ABUSER [None]
  - DRUG WITHDRAWAL SYNDROME [None]
  - GRANDIOSITY [None]
  - INSOMNIA [None]
  - LISTLESS [None]
  - LOGORRHOEA [None]
  - MANIA [None]
